FAERS Safety Report 6359475-3 (Version None)
Quarter: 2009Q3

REPORT INFORMATION
  Report Type: 
  Country: None (occurrence: None)
  Receive Date: 20090914
  Receipt Date: 20090831
  Transmission Date: 20100115
  Serious: Yes (Death)
  Sender: FDA-Public Use
  Company Number: DSA_41567_2009

PATIENT
  Age: 50 Year
  Sex: Male

DRUGS (7)
  1. ATIVAN [Suspect]
     Indication: DRUG USE FOR UNKNOWN INDICATION
     Dosage: (DF)
  2. PROPOFOL [Suspect]
     Indication: INSOMNIA
     Dosage: (DF)
  3. VALIUM [Suspect]
     Indication: DRUG USE FOR UNKNOWN INDICATION
     Dosage: (DF)
  4. VERSED [Suspect]
     Indication: DRUG USE FOR UNKNOWN INDICATION
     Dosage: (DF)
  5. ANTIDEPRESSANTS [Concomitant]
  6. ANXIOLYTICS [Concomitant]
  7. HYPNOTICS AND SEDATIVES [Concomitant]

REACTIONS (5)
  - CARDIAC FAILURE [None]
  - DRUG DEPENDENCE [None]
  - DRUG TOXICITY [None]
  - RESPIRATORY ARREST [None]
  - VICTIM OF HOMICIDE [None]
